FAERS Safety Report 7087072-3 (Version None)
Quarter: 2010Q4

REPORT INFORMATION
  Report Type: 
  Country: None (occurrence: None)
  Receive Date: 20101106
  Receipt Date: 20101028
  Transmission Date: 20110411
  Serious: No
  Sender: FDA-Public Use
  Company Number: US-WYE-H18410010

PATIENT
  Sex: Female

DRUGS (1)
  1. ADVIL [Suspect]
     Indication: TOOTHACHE
     Dosage: ONE GELCAP ONCE
     Route: 048
     Dates: start: 20101027, end: 20101027

REACTIONS (1)
  - CRYING [None]
